FAERS Safety Report 5336865-9 (Version None)
Quarter: 2007Q2

REPORT INFORMATION
  Report Type: 
  Country: None (occurrence: None)
  Receive Date: 20070524
  Receipt Date: 20070524
  Transmission Date: 20071010
  Serious: Yes (Hospitalization)
  Sender: FDA-Public Use
  Company Number: None

PATIENT
  Age: 35 Year
  Sex: Female
  Weight: 68.94 kg

DRUGS (1)
  1. VENOFER [Suspect]
     Dosage: 500MG ONE TIME DOSE IV
     Route: 042
     Dates: start: 20070518, end: 20070518

REACTIONS (5)
  - BURNING SENSATION [None]
  - HYPOTENSION [None]
  - INFUSION SITE SWELLING [None]
  - OEDEMA PERIPHERAL [None]
  - PALLOR [None]
